FAERS Safety Report 13682052 (Version 1)
Quarter: 2017Q2

REPORT INFORMATION
  Report Type: Spontaneous
  Country: US (occurrence: US)
  Receive Date: 20170623
  Receipt Date: 20170623
  Transmission Date: 20170830
  Serious: No
  Sender: FDA-Public Use
  Company Number: US-BAYER-2017-121441

PATIENT
  Age: 4 Year
  Sex: Male
  Weight: 23 kg

DRUGS (1)
  1. CLARITIN [Suspect]
     Active Substance: LORATADINE
     Dosage: 1 DF, ONCE
     Route: 048
     Dates: start: 20170622, end: 20170622

REACTIONS (2)
  - Accidental exposure to product by child [Unknown]
  - Expired product administered [Unknown]

NARRATIVE: CASE EVENT DATE: 20170622
